FAERS Safety Report 10028231 (Version 1)
Quarter: 2014Q1

REPORT INFORMATION
  Report Type: Spontaneous
  Country: US (occurrence: None)
  Receive Date: 20140319
  Receipt Date: 20140319
  Transmission Date: 20141002
  Serious: Yes (Other)
  Sender: FDA-Public Use
  Company Number: C-14-015

PATIENT
  Sex: Male

DRUGS (1)
  1. OXYCODONE 30MG TABLETS (KVK-TECH, INC) [Suspect]
     Indication: PAIN
     Dates: start: 20140225

REACTIONS (2)
  - Drug ineffective [None]
  - Product substitution issue [None]
